FAERS Safety Report 5562918-6 (Version None)
Quarter: 2007Q4

REPORT INFORMATION
  Report Type: 
  Country: None (occurrence: None)
  Receive Date: 20071217
  Receipt Date: 20071203
  Transmission Date: 20080405
  Serious: Yes (Other)
  Sender: FDA-Public Use
  Company Number: US-AMGEN-STX255274

PATIENT
  Sex: Female

DRUGS (5)
  1. ENBREL [Suspect]
     Indication: PSORIATIC ARTHROPATHY
     Route: 058
     Dates: start: 19980101
  2. ENBREL [Suspect]
     Indication: PSORIASIS
  3. ENBREL [Suspect]
     Indication: OSTEOARTHRITIS
  4. REMICADE [Concomitant]
     Route: 065
     Dates: start: 20020101, end: 20020101
  5. METHOTREXATE [Concomitant]
     Route: 065
     Dates: start: 19990101, end: 20010101

REACTIONS (9)
  - BRONCHITIS [None]
  - CATARACT [None]
  - COUGH [None]
  - LIVER DISORDER [None]
  - MYALGIA [None]
  - NAUSEA [None]
  - PHARYNGOLARYNGEAL PAIN [None]
  - PYREXIA [None]
  - RHINORRHOEA [None]
